FAERS Safety Report 12093432 (Version 1)
Quarter: 2016Q1

REPORT INFORMATION
  Report Type: Spontaneous
  Country: DE (occurrence: DE)
  Receive Date: 20160219
  Receipt Date: 20160219
  Transmission Date: 20160526
  Serious: Yes (Other)
  Sender: FDA-Public Use
  Company Number: DE-ACTAVIS-2016-03306

PATIENT
  Age: 81 Year
  Sex: Female

DRUGS (5)
  1. PANTOPRAZOLE SODIUM. [Suspect]
     Active Substance: PANTOPRAZOLE SODIUM
     Dosage: 80 MG, DAILY
     Route: 048
     Dates: start: 20150205, end: 20151209
  2. PANTOPRAZOLE SODIUM. [Suspect]
     Active Substance: PANTOPRAZOLE SODIUM
     Indication: GASTRIC ULCER
     Dosage: 120 MG, DAILY
     Route: 048
     Dates: start: 20151210
  3. NOVAMINSULFON [Concomitant]
     Active Substance: METAMIZOLE
     Indication: OSTEOARTHRITIS
     Dosage: 30 GTT DROP(S), QID
     Route: 048
  4. L-THYROXIN [Concomitant]
     Active Substance: LEVOTHYROXINE SODIUM
     Indication: HYPOTHYROIDISM
     Dosage: 100 ?G, DAILY
     Route: 048
  5. METOPROLOL                         /00376903/ [Concomitant]
     Indication: HYPERTENSION
     Dosage: 23.25 MG, DAILY
     Route: 048

REACTIONS (1)
  - Hyperparathyroidism [Not Recovered/Not Resolved]

NARRATIVE: CASE EVENT DATE: 20151208
